FAERS Safety Report 4311708-0 (Version None)
Quarter: 2004Q1

REPORT INFORMATION
  Report Type: 
  Country: None (occurrence: None)
  Receive Date: 20040303
  Receipt Date: 20040303
  Transmission Date: 20041129
  Serious: Yes (Death)
  Sender: FDA-Public Use
  Company Number: None

PATIENT
  Age: 44 Year
  Sex: Female
  Weight: 61.2356 kg

DRUGS (2)
  1. OXYCONTIN [Suspect]
     Indication: INTERVERTEBRAL DISC PROTRUSION
     Dosage: 40 MG'SQ8 HR ORAL
     Route: 048
     Dates: start: 20000224, end: 20000727
  2. OXYCODONE HCL [Suspect]
     Indication: INTERVERTEBRAL DISC PROTRUSION
     Dosage: 5 MG AS NEEDE ORAL
     Route: 048
     Dates: start: 20000224, end: 20000727

REACTIONS (2)
  - DRUG DEPENDENCE [None]
  - MEDICATION ERROR [None]
